FAERS Safety Report 11694213 (Version 2)
Quarter: 2016Q1

REPORT INFORMATION
  Report Type: Spontaneous
  Country: US (occurrence: US)
  Receive Date: 20151103
  Receipt Date: 20160114
  Transmission Date: 20160525
  Serious: Yes (Life-Threatening, Hospitalization, Other)
  Sender: FDA-Public Use
  Company Number: US-ELI_LILLY_AND_COMPANY-US201510007723

PATIENT
  Age: 67 Year
  Sex: Male
  Weight: 65.76 kg

DRUGS (8)
  1. ASPIRIN                            /00002701/ [Concomitant]
     Active Substance: ASPIRIN
     Dosage: 81 MG, QD
     Route: 048
  2. GEMFIBROZIL. [Concomitant]
     Active Substance: GEMFIBROZIL
     Dosage: UNK, UNKNOWN
     Route: 065
  3. CRESTOR [Concomitant]
     Active Substance: ROSUVASTATIN CALCIUM
     Dosage: 10 MG, QD
     Route: 048
  4. AXIRON [Suspect]
     Active Substance: TESTOSTERONE
     Indication: BLOOD TESTOSTERONE DECREASED
  5. CIALIS [Concomitant]
     Active Substance: TADALAFIL
     Dosage: 20 MG, UNK
     Route: 065
  6. GLYBURIDE. [Concomitant]
     Active Substance: GLYBURIDE
     Dosage: UNK, UNKNOWN
     Route: 065
  7. AXIRON [Suspect]
     Active Substance: TESTOSTERONE
     Indication: HORMONE REPLACEMENT THERAPY
     Dosage: UNK, UNKNOWN
     Route: 065
     Dates: start: 20130531, end: 20131110
  8. PRAVASTATIN [Concomitant]
     Active Substance: PRAVASTATIN\PRAVASTATIN SODIUM
     Dosage: UNK, UNKNOWN
     Route: 048

REACTIONS (8)
  - Chronic obstructive pulmonary disease [Unknown]
  - Acute respiratory failure [Recovered/Resolved]
  - Cardiac failure congestive [Recovered/Resolved]
  - Cardiomyopathy [Unknown]
  - Left ventricular failure [Recovered/Resolved]
  - Pulmonary oedema [Unknown]
  - Coronary artery disease [Unknown]
  - Atrial fibrillation [Recovered/Resolved]

NARRATIVE: CASE EVENT DATE: 20131110
